FAERS Safety Report 25980716 (Version 1)
Quarter: 2025Q4

REPORT INFORMATION
  Report Type: Spontaneous
  Country: EU (occurrence: EU)
  Receive Date: 20251030
  Receipt Date: 20251030
  Transmission Date: 20260117
  Serious: Yes (Hospitalization)
  Sender: GENBIOPRO
  Company Number: EU-GENBIOPRO-2025GEN00014

PATIENT
  Age: 58 Year
  Sex: Female

DRUGS (1)
  1. MISOPROSTOL [Suspect]
     Active Substance: MISOPROSTOL
     Indication: Hysteroscopy
     Route: 067

REACTIONS (2)
  - Prinzmetal angina [Recovered/Resolved]
  - Electrocardiogram ST segment elevation [Recovered/Resolved]
